FAERS Safety Report 9322035 (Version 1)
Quarter: 2013Q2

REPORT INFORMATION
  Report Type: Spontaneous
  Country: US (occurrence: US)
  Receive Date: 20130531
  Receipt Date: 20130531
  Transmission Date: 20140414
  Serious: Yes (Hospitalization)
  Sender: FDA-Public Use
  Company Number: US-BAYER-2013-066471

PATIENT
  Age: 25 Year
  Sex: Female

DRUGS (6)
  1. YAZ [Suspect]
  2. ZOLOFT [Concomitant]
  3. OXYCODONE HYDROCHLORIDE [Concomitant]
     Dosage: 5 MG, 1-2 EVERY Q4HR AS NEEDED
     Route: 048
  4. SERTRALINE HYDROCHLORIDE [Concomitant]
     Dosage: 100 MG, TAKE 1.5 PER DAY
     Route: 048
  5. BENADRYL [Concomitant]
  6. DIAZEPAM [Concomitant]
     Dosage: 5 MG, 1 THE NIGHT BEFORE SURGERY AND 4 HOURS BEFORE SURGERY
     Route: 048
     Dates: start: 20101103

REACTIONS (2)
  - Pulmonary embolism [None]
  - Pulmonary infarction [None]
